FAERS Safety Report 23652523 (Version 1)
Quarter: 2024Q1

REPORT INFORMATION
  Report Type: Spontaneous
  Country: CN (occurrence: CN)
  Receive Date: 20240320
  Receipt Date: 20240320
  Transmission Date: 20240410
  Serious: Yes (Hospitalization)
  Sender: FDA-Public Use
  Company Number: CN-GLAXOSMITHKLINE-CN2024APC033167

PATIENT

DRUGS (3)
  1. LAMOTRIGINE [Suspect]
     Active Substance: LAMOTRIGINE
     Indication: Epilepsy
     Dosage: 25.000 MG, BID
     Route: 048
     Dates: start: 20240130, end: 20240301
  2. VALPROATE SODIUM [Suspect]
     Active Substance: VALPROATE SODIUM
     Indication: Epilepsy
     Dosage: 0.500 G, BID
     Route: 048
     Dates: start: 20240130, end: 20240301
  3. CLOBAZAM [Suspect]
     Active Substance: CLOBAZAM
     Indication: Epilepsy
     Dosage: 10.000 MG, BID
     Route: 048
     Dates: start: 20240130, end: 20240301

REACTIONS (5)
  - Tremor [Recovering/Resolving]
  - Alopecia [Recovering/Resolving]
  - Obesity [Recovering/Resolving]
  - Weight increased [Recovering/Resolving]
  - Drug ineffective [Unknown]

NARRATIVE: CASE EVENT DATE: 20240220
